FAERS Safety Report 6055646-4 (Version None)
Quarter: 2009Q1

REPORT INFORMATION
  Report Type: 
  Country: None (occurrence: None)
  Receive Date: 20090123
  Receipt Date: 20090107
  Transmission Date: 20090719
  Serious: Yes (Death)
  Sender: FDA-Public Use
  Company Number: 2009SP001246

PATIENT
  Age: 62 Year
  Sex: Male

DRUGS (1)
  1. EPTIFIBATIDE (S-P) [Suspect]
     Indication: DRUG USE FOR UNKNOWN INDICATION
     Dosage: PARN
     Route: 051

REACTIONS (1)
  - MEDICATION ERROR [None]
